FAERS Safety Report 14957787 (Version 1)
Quarter: 2018Q2

REPORT INFORMATION
  Report Type: Report from Study
  Country: US (occurrence: US)
  Receive Date: 20180531
  Receipt Date: 20180531
  Transmission Date: 20180711
  Serious: Yes (Hospitalization, Other)
  Sender: FDA-Public Use
  Company Number: US-MYLANLABS-2017M1072494

PATIENT
  Age: 7 Year
  Sex: Male
  Weight: 32 kg

DRUGS (13)
  1. VINCRISTINE [Suspect]
     Active Substance: VINCRISTINE
     Dosage: 1.6 MG, DAYS 1,8,15 AND 43
     Route: 042
     Dates: start: 20170622
  2. CYCLOPHOSPHAMIDE. [Suspect]
     Active Substance: CYCLOPHOSPHAMIDE
     Indication: ACUTE LYMPHOCYTIC LEUKAEMIA
     Dosage: 1100 MG DAY 29
     Route: 042
     Dates: start: 20170420
  3. DEXAMETHASONE. [Suspect]
     Active Substance: DEXAMETHASONE
     Indication: ACUTE LYMPHOCYTIC LEUKAEMIA
     Dosage: 6 MG QAM ON DAYS 1-7 AND 15-21
     Route: 048
     Dates: start: 20170901
  4. METHOTREXATE. [Suspect]
     Active Substance: METHOTREXATE
     Indication: ACUTE LYMPHOCYTIC LEUKAEMIA
     Dosage: 12 MG ON DAYS 1, 29 AND 36
     Route: 037
     Dates: start: 20170420
  5. RUXOLITINIB [Suspect]
     Active Substance: RUXOLITINIB
     Indication: ACUTE LYMPHOCYTIC LEUKAEMIA
     Dosage: 40 MG, BID (DAYS 1-14, 28-42)
     Route: 048
     Dates: start: 20170420
  6. THIOGUANINE [Suspect]
     Active Substance: THIOGUANINE
     Dosage: 80 MG, QHS FOR 1 NIGHTS/WEEK
     Route: 048
     Dates: start: 20170929
  7. RUXOLITINIB [Suspect]
     Active Substance: RUXOLITINIB
     Dosage: 40 MG, BID, (DAYS 1-14, 28-42)
     Route: 048
     Dates: start: 20170622
  8. THIOGUANINE [Suspect]
     Active Substance: THIOGUANINE
     Indication: ACUTE LYMPHOCYTIC LEUKAEMIA
     Dosage: 60 MG, QHS FOR 6 NIGHTS/WEEK
     Route: 048
     Dates: start: 20170929
  9. CYTARABINE. [Suspect]
     Active Substance: CYTARABINE
     Indication: ACUTE LYMPHOCYTIC LEUKAEMIA
     Dosage: 80 MG DAYS 29 AND 36
     Route: 042
     Dates: start: 20170420
  10. DEXAMETHASONE. [Suspect]
     Active Substance: DEXAMETHASONE
     Dosage: ON DAYS 1-7 AND 15-215 MG, QH
     Route: 048
     Dates: start: 20170901
  11. DOXORUBICIN [Suspect]
     Active Substance: DOXORUBICIN
     Indication: ACUTE LYMPHOCYTIC LEUKAEMIA
     Dosage: 27 MG DAYS 1,8 AND 15
     Route: 042
     Dates: start: 20170901
  12. VINCRISTINE [Suspect]
     Active Substance: VINCRISTINE
     Indication: ACUTE LYMPHOCYTIC LEUKAEMIA
     Dosage: 1.6 MG, DAYS 1,8,15 AND 43
     Route: 042
     Dates: start: 20170504
  13. PEGASPARGASE [Suspect]
     Active Substance: PEGASPARGASE
     Indication: ACUTE LYMPHOCYTIC LEUKAEMIA
     Dosage: 2675 IU, DAYS 4,43
     Route: 042
     Dates: start: 20170504

REACTIONS (2)
  - White blood cell count decreased [Recovered/Resolved]
  - Febrile neutropenia [Recovered/Resolved]

NARRATIVE: CASE EVENT DATE: 20171014
